FAERS Safety Report 23884082 (Version 1)
Quarter: 2024Q2

REPORT INFORMATION
  Report Type: Spontaneous
  Country: PL (occurrence: PL)
  Receive Date: 20240522
  Receipt Date: 20240522
  Transmission Date: 20240715
  Serious: Yes (Death, Hospitalization, Other)
  Sender: FDA-Public Use
  Company Number: PL-EMA-20170301-plevhprod-153509402

PATIENT
  Age: 59 Year
  Sex: Male

DRUGS (12)
  1. LEFLUNOMIDE [Suspect]
     Active Substance: LEFLUNOMIDE
     Indication: Rheumatoid arthritis
     Dosage: 20 MILLIGRAM, ONCE A DAY (100MG/DAY FOR 3 DAYS, LATER DOSE REDUCED/FROM DAY 4)
     Route: 065
     Dates: start: 200911, end: 201002
  2. LEFLUNOMIDE [Suspect]
     Active Substance: LEFLUNOMIDE
     Dosage: 100 MILLIGRAM, ONCE A DAY (100 MG, QD, FOR 3 DAYS)
     Route: 065
     Dates: start: 200911
  3. CHLOROQUINE PHOSPHATE [Suspect]
     Active Substance: CHLOROQUINE PHOSPHATE
     Indication: Rheumatoid arthritis
     Dosage: UNK
     Route: 065
  4. SULFASALAZINE [Suspect]
     Active Substance: SULFASALAZINE
     Indication: Rheumatoid arthritis
     Dosage: UNK
     Route: 065
  5. PREDNISONE [Suspect]
     Active Substance: PREDNISONE
     Indication: Rheumatoid arthritis
     Dosage: 5 MILLIGRAM, ONCE A DAY (FOR RA)
     Route: 065
  6. PREDNISONE [Suspect]
     Active Substance: PREDNISONE
     Indication: Interstitial lung disease
     Dosage: 60 MILLIGRAM, ONCE A DAY (FOR INTERSTITIAL PNEUMONIA)
     Route: 065
  7. GANCICLOVIR [Suspect]
     Active Substance: GANCICLOVIR
     Indication: Opportunistic infection prophylaxis
     Dosage: UNK
     Route: 065
  8. METHOTREXATE [Suspect]
     Active Substance: METHOTREXATE
     Indication: Rheumatoid arthritis
     Dosage: 20 MILLIGRAM, EVERY WEEK
     Route: 065
     Dates: start: 200202, end: 200907
  9. CYCLOPHOSPHAMIDE [Suspect]
     Active Substance: CYCLOPHOSPHAMIDE
     Indication: Interstitial lung disease
     Dosage: 150 MILLIGRAM, ONCE A DAY
     Route: 065
     Dates: start: 2010
  10. CLOTRIMAZOLE [Suspect]
     Active Substance: CLOTRIMAZOLE
     Indication: Opportunistic infection prophylaxis
     Dosage: UNK
     Route: 065
  11. METHYLPREDNISOLONE [Suspect]
     Active Substance: METHYLPREDNISOLONE
     Indication: Interstitial lung disease
     Dosage: 500 MILLIGRAM
     Route: 042
  12. ITRACONAZOLE [Concomitant]
     Active Substance: ITRACONAZOLE
     Indication: Product used for unknown indication
     Dosage: UNK
     Route: 065

REACTIONS (19)
  - Dyspnoea exertional [Fatal]
  - Tachypnoea [Fatal]
  - Respiratory failure [Fatal]
  - Pyrexia [Fatal]
  - Fibrin D dimer increased [Fatal]
  - Acute interstitial pneumonitis [Fatal]
  - C-reactive protein increased [Fatal]
  - Cough [Fatal]
  - Rales [Fatal]
  - PO2 decreased [Fatal]
  - Interstitial lung disease [Fatal]
  - Vital capacity decreased [Fatal]
  - Hypoxia [Fatal]
  - Echocardiogram abnormal [Unknown]
  - Leukopenia [Unknown]
  - Pulmonary arterial pressure increased [Unknown]
  - Pulmonary hypertension [Unknown]
  - Neutropenia [Unknown]
  - Product use in unapproved indication [Unknown]

NARRATIVE: CASE EVENT DATE: 20100101
